FAERS Safety Report 4516771-X (Version None)
Quarter: 2004Q4

REPORT INFORMATION
  Report Type: 
  Country: None (occurrence: None)
  Receive Date: 20041029
  Receipt Date: 20040827
  Transmission Date: 20050328
  Serious: No
  Sender: FDA-Public Use
  Company Number: 2004-120020-NL

PATIENT
  Age: 33 Year
  Sex: Female
  Weight: 127.3 kg

DRUGS (4)
  1. NUVARING [Suspect]
     Indication: CONTRACEPTION
     Dosage: DF DAILY VAGINAL
     Route: 067
     Dates: start: 20040401, end: 20040728
  2. CELEBREX [Concomitant]
  3. MULTI-VITAMINS [Concomitant]
  4. GLUCOSAMINE/CHONDROITIN [Concomitant]

REACTIONS (11)
  - ABDOMINAL DISTENSION [None]
  - BREAST TENDERNESS [None]
  - DYSGEUSIA [None]
  - FATIGUE [None]
  - FOOD CRAVING [None]
  - NAUSEA [None]
  - NEOVASCULARISATION [None]
  - OLIGOMENORRHOEA [None]
  - POLLAKIURIA [None]
  - VAGINITIS [None]
  - WITHDRAWAL BLEEDING IRREGULAR [None]
